FAERS Safety Report 21696065 (Version 1)
Quarter: 2022Q4

REPORT INFORMATION
  Report Type: Report from Study
  Country: KR (occurrence: None)
  Receive Date: 20221207
  Receipt Date: 20221207
  Transmission Date: 20230113
  Serious: Yes (Death, Hospitalization)
  Sender: FDA-Public Use
  Company Number: KR-Eisai Medical Research-EC-2022-129553

PATIENT
  Age: 75 Year
  Sex: Female
  Weight: 47.3 kg

DRUGS (9)
  1. LENVIMA [Suspect]
     Active Substance: LENVATINIB
     Indication: Endometrial cancer
     Route: 048
     Dates: start: 20220907, end: 20221202
  2. PEMBROLIZUMAB [Suspect]
     Active Substance: PEMBROLIZUMAB
     Indication: Endometrial cancer
     Route: 041
     Dates: start: 20220907, end: 20221124
  3. ENTELON [Concomitant]
     Indication: Pulmonary embolism
     Dosage: 2 TAB
     Route: 048
     Dates: start: 20201214
  4. ELIQUIS [Concomitant]
     Active Substance: APIXABAN
     Indication: Pulmonary embolism
     Route: 048
     Dates: start: 20201214
  5. MYPOL [Concomitant]
     Indication: Pain
     Dosage: 3 CAP
     Route: 048
     Dates: start: 20220826
  6. CELEBREX [Concomitant]
     Active Substance: CELECOXIB
     Indication: Pain
     Dosage: 2 CAP
     Route: 048
     Dates: start: 20220826
  7. LYRICA [Concomitant]
     Active Substance: PREGABALIN
     Indication: Pain
     Dosage: 2 CAP
     Route: 048
     Dates: start: 20220826
  8. LAFUTIDINE [Concomitant]
     Active Substance: LAFUTIDINE
     Indication: Gastritis prophylaxis
     Dosage: 2 TAB
     Route: 048
     Dates: start: 20220826
  9. FEROBA YOU SR [Concomitant]
     Indication: Anaemia
     Dosage: 1 TAB
     Route: 048
     Dates: start: 20220907

REACTIONS (2)
  - Multiple organ dysfunction syndrome [Fatal]
  - Discomfort [Recovering/Resolving]

NARRATIVE: CASE EVENT DATE: 20221128
